FAERS Safety Report 20942519 (Version 6)
Quarter: 2024Q2

REPORT INFORMATION
  Report Type: Other
  Country: CA (occurrence: None)
  Receive Date: 20220610
  Receipt Date: 20240430
  Transmission Date: 20240715
  Serious: Yes (Hospitalization, Other)
  Sender: FDA-Public Use
  Company Number: CA-ROCHE-2578486

PATIENT
  Age: 49 Year
  Sex: Male

DRUGS (18)
  1. OCREVUS [Suspect]
     Active Substance: OCRELIZUMAB
     Indication: Relapsing-remitting multiple sclerosis
     Dosage: 300 MG AT DAY 0 AND 14, THEN 600 MG EVERY 5 MONTH, CONCENTRATE FOR INTRAVENOUS INFUSION
     Route: 042
     Dates: start: 20200312
  2. BRILINTA [Concomitant]
     Active Substance: TICAGRELOR
  3. METOPROLOL [Concomitant]
     Active Substance: METOPROLOL
  4. DULOXETINE [Concomitant]
     Active Substance: DULOXETINE
  5. SYNTHROID [Concomitant]
     Active Substance: LEVOTHYROXINE SODIUM
  6. BACLOFEN [Concomitant]
     Active Substance: BACLOFEN
  7. TELMISARTAN [Concomitant]
     Active Substance: TELMISARTAN
  8. METFORMIN [Concomitant]
     Active Substance: METFORMIN HYDROCHLORIDE
  9. PANTOPRAZOLE SODIUM [Concomitant]
     Active Substance: PANTOPRAZOLE SODIUM
  10. ATORVASTATIN [Concomitant]
     Active Substance: ATORVASTATIN
  11. ASPIRIN [Concomitant]
     Active Substance: ASPIRIN
  12. VITAMIN C [Concomitant]
     Active Substance: ASCORBIC ACID
  13. OMEGA 3 [Concomitant]
     Active Substance: CAPSAICIN
  14. VITAMIN B1 [Concomitant]
     Active Substance: THIAMINE HYDROCHLORIDE
  15. MAGNESIUM [Concomitant]
     Active Substance: MAGNESIUM
  16. FESOTERODINE [Concomitant]
     Active Substance: FESOTERODINE
  17. PREGABALIN [Concomitant]
     Active Substance: PREGABALIN
  18. TIZANIDINE [Concomitant]
     Active Substance: TIZANIDINE

REACTIONS (15)
  - Myocardial infarction [Recovered/Resolved]
  - Diabetes mellitus [Unknown]
  - Fatigue [Not Recovered/Not Resolved]
  - Burning sensation [Recovered/Resolved]
  - Hot flush [Not Recovered/Not Resolved]
  - Hyperhidrosis [Not Recovered/Not Resolved]
  - Brain fog [Not Recovered/Not Resolved]
  - Eye disorder [Not Recovered/Not Resolved]
  - Weight decreased [Unknown]
  - Obesity [Unknown]
  - COVID-19 [Unknown]
  - Off label use [Unknown]
  - Hypotension [Unknown]
  - Bradycardia [Unknown]
  - Fatigue [Unknown]

NARRATIVE: CASE EVENT DATE: 20200604
